FAERS Safety Report 9915841 (Version 2)
Quarter: 2014Q1

REPORT INFORMATION
  Report Type: Spontaneous
  Country: IT (occurrence: IT)
  Receive Date: 20140221
  Receipt Date: 20140305
  Transmission Date: 20141002
  Serious: Yes (Death)
  Sender: FDA-Public Use
  Company Number: IT-SA-2014SA020627

PATIENT
  Age: 7 Year
  Sex: Male
  Weight: 13 kg

DRUGS (3)
  1. MYOZYME [Suspect]
     Indication: GLYCOGEN STORAGE DISEASE TYPE II
     Dosage: 11 VIALS EVERY 14 DAYS
     Route: 042
     Dates: start: 20081030, end: 20140207
  2. ZAVESCA [Concomitant]
     Dates: start: 20110713, end: 20140207
  3. CIPROXIN [Concomitant]

REACTIONS (3)
  - Acute respiratory failure [Fatal]
  - General physical health deterioration [Fatal]
  - Oxygen saturation decreased [Fatal]
